FAERS Safety Report 18664204 (Version 5)
Quarter: 2022Q3

REPORT INFORMATION
  Report Type: Spontaneous
  Country: GB (occurrence: GB)
  Receive Date: 20201225
  Receipt Date: 20220915
  Transmission Date: 20221026
  Serious: Yes (Other)
  Sender: FDA-Public Use
  Company Number: GB-BIOVITRUM-2020GB7864

PATIENT
  Age: 56 Year
  Sex: Female

DRUGS (13)
  1. ORFADIN [Suspect]
     Active Substance: NITISINONE
     Indication: Alkaptonuria
     Dosage: 2 MG
     Dates: start: 2012
  2. THYROXINE [Concomitant]
     Active Substance: LEVOTHYROXINE
     Dosage: 1000 MG
     Dates: start: 2012
  3. ASCORBIC ACID [Concomitant]
     Active Substance: ASCORBIC ACID
     Dosage: 1000 MG
     Dates: start: 2012
  4. TRAMADOL [Concomitant]
     Active Substance: TRAMADOL
     Dosage: 100 MG
     Dates: start: 2012
  5. ACETAMINOPHEN [Concomitant]
     Active Substance: ACETAMINOPHEN
     Dosage: 1000 MG
     Dates: start: 2012
  6. OMEPRAZOLE [Concomitant]
     Active Substance: OMEPRAZOLE
     Dosage: ADDITONAL DOSE OF 20 MILLIGRAM AND 10 MG
     Dates: start: 2012
  7. VENLAFAXINE [Concomitant]
     Active Substance: VENLAFAXINE HYDROCHLORIDE
     Dosage: 75 MG
     Dates: start: 2012
  8. MORPHINE SULFATE [Concomitant]
     Active Substance: MORPHINE SULFATE
     Dosage: 10 MG
     Dates: start: 2012
  9. CYANOCOBALAMIN [Concomitant]
     Active Substance: CYANOCOBALAMIN
     Dosage: 100 MG
     Dates: start: 2012
  10. SIMVASTATIN [Concomitant]
     Active Substance: SIMVASTATIN
     Dosage: 40 MG
     Dates: start: 2012
  11. LACTULOSE [Concomitant]
     Active Substance: LACTULOSE
     Dosage: 15 ML
     Dates: start: 2012
  12. CLOTRIMAZOLE [Concomitant]
     Active Substance: CLOTRIMAZOLE
     Dates: start: 2012
  13. HYDROCORTISONE [Concomitant]
     Active Substance: HYDROCORTISONE
     Dosage: CREAM
     Dates: start: 2012

REACTIONS (2)
  - Cataract [Unknown]
  - Amino acid level increased [Unknown]

NARRATIVE: CASE EVENT DATE: 20150101
